FAERS Safety Report 9069099 (Version 2)
Quarter: 2013Q3

REPORT INFORMATION
  Report Type: Spontaneous
  Country: US (occurrence: US)
  Receive Date: 20130215
  Receipt Date: 20130723
  Transmission Date: 20140515
  Serious: Yes (Hospitalization, Other)
  Sender: FDA-Public Use
  Company Number: US-BAYER-2013-019723

PATIENT
  Age: 32 Year
  Sex: Female

DRUGS (7)
  1. YASMIN [Suspect]
     Dosage: UNK
     Dates: start: 200601
  2. YAZ [Suspect]
     Dosage: UNK
     Dates: start: 200601
  3. NEXIUM [Concomitant]
     Dosage: 40 MG, DAILY
  4. IPRATROPIUM [Concomitant]
  5. NICOTINE [Concomitant]
  6. ALBUTEROL [Concomitant]
  7. PULMICORT [Concomitant]

REACTIONS (6)
  - Thrombosis [None]
  - Pain [None]
  - Injury [None]
  - Cholecystitis chronic [None]
  - Fear of disease [None]
  - Pain [None]
